FAERS Safety Report 4834218-0 (Version None)
Quarter: 2005Q4

REPORT INFORMATION
  Report Type: 
  Country: None (occurrence: None)
  Receive Date: 20051122
  Receipt Date: 20050914
  Transmission Date: 20060501
  Serious: Yes (Other)
  Sender: FDA-Public Use
  Company Number: 2005AP04931

PATIENT
  Age: 520 Month
  Sex: Female

DRUGS (2)
  1. IRESSA [Suspect]
     Indication: LUNG ADENOCARCINOMA
     Route: 048
     Dates: start: 20030101, end: 20040601
  2. RADIOTHERAPY [Suspect]
     Indication: METASTASES TO CENTRAL NERVOUS SYSTEM
     Dosage: X-KNIFE 20 GY TO MARGINAL AREA
     Dates: start: 20030813

REACTIONS (3)
  - NECROSIS [None]
  - NEOPLASM RECURRENCE [None]
  - RADIATION INJURY [None]
